FAERS Safety Report 9316226 (Version 8)
Quarter: 2016Q3

REPORT INFORMATION
  Report Type: Report from Study
  Country: BR (occurrence: BR)
  Receive Date: 20130530
  Receipt Date: 20160722
  Transmission Date: 20161109
  Serious: Yes (Life-Threatening, Hospitalization, Other)
  Sender: FDA-Public Use
  Company Number: PHHY2013BR036960

PATIENT
  Age: 80 Year
  Sex: Male

DRUGS (4)
  1. FORASEQ [Suspect]
     Active Substance: BUDESONIDE\FORMOTEROL FUMARATE
     Dosage: 1 DF (BUDESONIDE 12 UG, FORMOTEROL FUMARATE 400 UG), BID (1 IN THE MORNING AND 1 AT NIGHT)
     Route: 055
     Dates: start: 2006
  2. FORASEQ [Suspect]
     Active Substance: BUDESONIDE\FORMOTEROL FUMARATE
     Indication: DYSPNOEA
     Dosage: 2 DF(BUDESONIDE 12 UG, FORMOTEROL FUMARATE 400 UG), TID
     Route: 055
     Dates: start: 2006
  3. TEGRETARD [Concomitant]
     Active Substance: CARBAMAZEPINE
     Indication: PRODUCT USED FOR UNKNOWN INDICATION
     Dosage: 1 DF, QD
     Route: 048
     Dates: start: 201301
  4. FORASEQ [Suspect]
     Active Substance: BUDESONIDE\FORMOTEROL FUMARATE
     Indication: BRONCHITIS
     Dosage: 2 DF (BUDESONIDE 12 UG, FORMOTEROL FUMARATE 400 UG), BID
     Route: 055
     Dates: start: 2006

REACTIONS (17)
  - Apparent death [Unknown]
  - Fear of death [Unknown]
  - Musculoskeletal chest pain [Not Recovered/Not Resolved]
  - Dengue fever [Not Recovered/Not Resolved]
  - Constipation [Not Recovered/Not Resolved]
  - Product use issue [Unknown]
  - Insomnia [Unknown]
  - Somnolence [Recovered/Resolved]
  - Incorrect dose administered [Unknown]
  - Panic disorder [Not Recovered/Not Resolved]
  - Suicidal ideation [Recovered/Resolved]
  - Foot fracture [Not Recovered/Not Resolved]
  - Weight decreased [Recovered/Resolved]
  - Eating disorder [Unknown]
  - Dyspnoea [Not Recovered/Not Resolved]
  - Pain in extremity [Recovering/Resolving]
  - Abasia [Not Recovered/Not Resolved]

NARRATIVE: CASE EVENT DATE: 2006
